FAERS Safety Report 4573524-4 (Version None)
Quarter: 2005Q1

REPORT INFORMATION
  Report Type: 
  Country: None (occurrence: None)
  Receive Date: 20050208
  Receipt Date: 20040909
  Transmission Date: 20050727
  Serious: No
  Sender: FDA-Public Use
  Company Number: US-GLAXOSMITHKLINE-A0525081A

PATIENT
  Age: 38 Year
  Sex: Male

DRUGS (1)
  1. PAXIL [Suspect]
     Indication: MAJOR DEPRESSION
     Dosage: 10MG PER DAY
     Route: 048
     Dates: start: 20010101, end: 20030101

REACTIONS (1)
  - GASTROOESOPHAGEAL REFLUX DISEASE [None]
